FAERS Safety Report 24675933 (Version 1)
Quarter: 2024Q4

REPORT INFORMATION
  Report Type: Spontaneous
  Country: US (occurrence: US)
  Receive Date: 20241128
  Receipt Date: 20241128
  Transmission Date: 20250115
  Serious: Yes (Other)
  Sender: NOVARTIS
  Company Number: US-002147023-NVSC2024US225810

PATIENT

DRUGS (1)
  1. KISQALI [Suspect]
     Active Substance: RIBOCICLIB
     Indication: Product used for unknown indication
     Dosage: UNK
     Route: 065

REACTIONS (33)
  - Metastases to spine [Unknown]
  - Metastasis [Unknown]
  - Metastases to bone [Unknown]
  - Metastases to liver [Unknown]
  - Cerebrovascular accident [Unknown]
  - Syncope [Unknown]
  - Disease progression [Unknown]
  - Disease recurrence [Unknown]
  - Arthralgia [Unknown]
  - Dry skin [Unknown]
  - Gastrointestinal disorder [Unknown]
  - Flatulence [Unknown]
  - Nausea [Unknown]
  - Pyrexia [Unknown]
  - Gastroenteritis [Unknown]
  - Fatigue [Unknown]
  - Dizziness [Unknown]
  - Pruritus [Unknown]
  - Diarrhoea [Unknown]
  - Neutrophil count decreased [Unknown]
  - Tumour marker decreased [Unknown]
  - Weight decreased [Unknown]
  - Alopecia [Unknown]
  - Taste disorder [Unknown]
  - Insomnia [Unknown]
  - Peripheral swelling [Unknown]
  - Pain in extremity [Unknown]
  - Gait disturbance [Unknown]
  - Neuralgia [Unknown]
  - Hypoaesthesia [Unknown]
  - Rash [Unknown]
  - Oral pain [Unknown]
  - Drug ineffective [Unknown]
